FAERS Safety Report 7325069-6 (Version None)
Quarter: 2011Q1

REPORT INFORMATION
  Report Type: 
  Country: None (occurrence: None)
  Receive Date: 20110302
  Receipt Date: 20110223
  Transmission Date: 20110831
  Serious: Yes (Death, Hospitalization)
  Sender: FDA-Public Use
  Company Number: US-BIOGENIDEC-2011BI000595

PATIENT
  Age: 55 Year
  Sex: Female

DRUGS (10)
  1. CLARITIN [Concomitant]
     Route: 048
  2. ANTIVERT [Concomitant]
     Route: 048
     Dates: start: 20101130
  3. SINGULAIR [Concomitant]
     Route: 048
  4. OPANA ER [Concomitant]
     Route: 048
  5. QUALAQUIN [Concomitant]
     Route: 048
  6. CLAVULANATE POTASSIUM [Concomitant]
     Route: 048
     Dates: start: 20101130, end: 20101209
  7. HYDROXYZINE [Concomitant]
     Route: 048
  8. AMOXICILLIN [Concomitant]
     Route: 048
     Dates: start: 20101130, end: 20101209
  9. GOLYTELY [Concomitant]
     Route: 048
     Dates: start: 20101022
  10. TYSABRI [Suspect]
     Indication: MULTIPLE SCLEROSIS
     Route: 042
     Dates: start: 20070409, end: 20101216

REACTIONS (2)
  - PROGRESSIVE MULTIFOCAL LEUKOENCEPHALOPATHY [None]
  - DEATH [None]
